FAERS Safety Report 9994065 (Version 1)
Quarter: 2014Q1

REPORT INFORMATION
  Report Type: Spontaneous
  Country: US (occurrence: US)
  Receive Date: 20140310
  Receipt Date: 20140310
  Transmission Date: 20141002
  Serious: No
  Sender: FDA-Public Use
  Company Number: US-AMGEN-USASP2014005322

PATIENT
  Age: 58 Year
  Sex: Female

DRUGS (1)
  1. SENSIPAR [Suspect]
     Indication: HYPERPARATHYROIDISM SECONDARY
     Dosage: UNK
     Route: 065
     Dates: start: 2013

REACTIONS (5)
  - Blood parathyroid hormone increased [Unknown]
  - Weight increased [Unknown]
  - Fluid retention [Unknown]
  - Dizziness [Recovered/Resolved]
  - Blood calcium decreased [Unknown]
